FAERS Safety Report 9625025 (Version 1)
Quarter: 2013Q4

REPORT INFORMATION
  Report Type: Spontaneous
  Country: US (occurrence: US)
  Receive Date: 20131016
  Receipt Date: 20131016
  Transmission Date: 20140711
  Serious: Yes (Hospitalization)
  Sender: FDA-Public Use
  Company Number: US-ASTRAZENECA-2013SE75073

PATIENT
  Age: 52 Year
  Sex: Female
  Weight: 72.6 kg

DRUGS (2)
  1. NEXIUM [Suspect]
     Indication: OESOPHAGEAL ULCER
     Route: 048
     Dates: start: 2004, end: 2012
  2. LEVOTHYROXINE [Concomitant]

REACTIONS (5)
  - Chest pain [Unknown]
  - Gastrooesophageal reflux disease [Unknown]
  - Abdominal pain upper [Unknown]
  - Drug ineffective [Unknown]
  - Intentional drug misuse [Unknown]
